FAERS Safety Report 5448883-0 (Version None)
Quarter: 2007Q3

REPORT INFORMATION
  Report Type: 
  Country: None (occurrence: None)
  Receive Date: 20070911
  Receipt Date: 20070813
  Transmission Date: 20080115
  Serious: No
  Sender: FDA-Public Use
  Company Number: US-BRISTOL-MYERS SQUIBB COMPANY-13875943

PATIENT
  Sex: Female

DRUGS (2)
  1. EMSAM [Suspect]
  2. ENEMA CASEN [Concomitant]

REACTIONS (5)
  - ADVERSE EVENT [None]
  - HEADACHE [None]
  - MUSCULOSKELETAL STIFFNESS [None]
  - NAUSEA [None]
  - VOMITING [None]
